FAERS Safety Report 20108745 (Version 1)
Quarter: 2021Q4

REPORT INFORMATION
  Report Type: Spontaneous
  Country: BR (occurrence: BR)
  Receive Date: 20211124
  Receipt Date: 20211124
  Transmission Date: 20220303
  Serious: Yes (Hospitalization, Other)
  Sender: FDA-Public Use
  Company Number: BR-GLAXOSMITHKLINE-BR2019GSK031446

PATIENT
  Sex: Female
  Weight: 63 kg

DRUGS (4)
  1. BENLYSTA [Suspect]
     Active Substance: BELIMUMAB
     Indication: Systemic lupus erythematosus
     Dosage: 1X400MG AND 2X120MG EACH 30 DAYS
     Dates: start: 20181203, end: 202106
  2. AMOXICILLIN [Suspect]
     Active Substance: AMOXICILLIN
     Indication: Pharyngitis
     Dosage: UNK
  3. PREDNISOLONE [Suspect]
     Active Substance: PREDNISOLONE
     Indication: Product used for unknown indication
     Dosage: 1 DF, QD20MG
  4. ENALAPRIL MALEATE\HYDROCHLOROTHIAZIDE [Suspect]
     Active Substance: ENALAPRIL MALEATE\HYDROCHLOROTHIAZIDE
     Indication: Product used for unknown indication
     Dosage: 1 DF, QD 10MG

REACTIONS (13)
  - Systemic lupus erythematosus [Recovering/Resolving]
  - Discouragement [Recovering/Resolving]
  - Asthenia [Recovering/Resolving]
  - Musculoskeletal chest pain [Recovering/Resolving]
  - Cough [Not Recovered/Not Resolved]
  - Pharyngitis [Recovering/Resolving]
  - Platelet count decreased [Unknown]
  - Proteinuria [Unknown]
  - Dysphonia [Unknown]
  - Product dose omission issue [Not Recovered/Not Resolved]
  - Product availability issue [Unknown]
  - Inappropriate schedule of product administration [Unknown]
  - Product supply issue [Unknown]

NARRATIVE: CASE EVENT DATE: 20210101
